FAERS Safety Report 22670672 (Version 3)
Quarter: 2024Q1

REPORT INFORMATION
  Report Type: Other
  Country: RO (occurrence: None)
  Receive Date: 20230705
  Receipt Date: 20240122
  Transmission Date: 20240410
  Serious: Yes (Hospitalization)
  Sender: FDA-Public Use
  Company Number: RO-ROCHE-3382492

PATIENT
  Sex: Male
  Weight: 85 kg

DRUGS (2)
  1. GLOFITAMAB [Suspect]
     Active Substance: GLOFITAMAB
     Indication: Mantle cell lymphoma refractory
     Route: 042
     Dates: start: 20230621, end: 20230621
  2. OBINUTUZUMAB [Suspect]
     Active Substance: OBINUTUZUMAB
     Indication: Mantle cell lymphoma refractory
     Route: 042

REACTIONS (1)
  - Cytokine release syndrome [Unknown]
